FAERS Safety Report 7037154-7 (Version None)
Quarter: 2010Q4

REPORT INFORMATION
  Report Type: 
  Country: None (occurrence: None)
  Receive Date: 20101011
  Receipt Date: 20100929
  Transmission Date: 20110411
  Serious: Yes (Hospitalization, Other)
  Sender: FDA-Public Use
  Company Number: SE-NOVOPROD-270592

PATIENT
  Age: 57 Year
  Sex: Male
  Weight: 95.9 kg

DRUGS (4)
  1. NORDITROPIN [Suspect]
     Indication: GROWTH HORMONE DEFICIENCY
     Dosage: UNK
     Dates: start: 19941215
  2. TESTOVIRON                         /00103101/ [Concomitant]
     Dosage: 1 X MONTHLY
  3. PRAVIDEL [Concomitant]
     Dosage: 2.5 MG X 1
  4. LEVOTHYROXINE SODIUM [Concomitant]
     Dosage: 100 MICRO GRAM X 1

REACTIONS (2)
  - PULMONARY EMBOLISM [None]
  - VENOUS THROMBOSIS [None]
